FAERS Safety Report 8910108 (Version 2)
Quarter: 2012Q4

REPORT INFORMATION
  Report Type: 
  Country: FR (occurrence: FR)
  Receive Date: 20121115
  Receipt Date: 20121123
  Transmission Date: 20130627
  Serious: Yes (Other)
  Sender: FDA-Public Use
  Company Number: FR-JNJFOC-20121104799

PATIENT
  Age: 42 Year
  Sex: Male
  Weight: 77 kg

DRUGS (10)
  1. REMICADE [Suspect]
     Indication: INTESTINAL FISTULA
     Route: 042
     Dates: start: 20120806
  2. REMICADE [Suspect]
     Indication: INTESTINAL FISTULA
     Route: 042
     Dates: start: 20120816
  3. REMICADE [Suspect]
     Indication: INTESTINAL FISTULA
     Route: 042
     Dates: start: 20120919
  4. REMICADE [Suspect]
     Indication: CROHN^S DISEASE
     Route: 042
     Dates: start: 20120919
  5. REMICADE [Suspect]
     Indication: CROHN^S DISEASE
     Route: 042
     Dates: start: 20120816
  6. REMICADE [Suspect]
     Indication: CROHN^S DISEASE
     Route: 042
     Dates: start: 20120806
  7. IMUREL [Suspect]
     Indication: PRODUCT USED FOR UNKNOWN INDICATION
     Route: 065
     Dates: start: 20120804, end: 20121105
  8. CORTICOSTEROID NOS [Concomitant]
     Route: 065
  9. VIREAD [Concomitant]
     Indication: HEPATITIS B
     Dosage: 1 DF (dose factor)
     Route: 065
     Dates: start: 20120804
  10. CORTANCYL [Concomitant]
     Indication: PRODUCT USED FOR UNKNOWN INDICATION
     Dates: start: 20120810, end: 20120910

REACTIONS (1)
  - Legionella infection [Recovered/Resolved]
